FAERS Safety Report 10079658 (Version 1)
Quarter: 2014Q2

REPORT INFORMATION
  Report Type: Spontaneous
  Country: US (occurrence: None)
  Receive Date: 20140414
  Receipt Date: 20140414
  Transmission Date: 20141212
  Serious: Yes (Disabling)
  Sender: FDA-Public Use
  Company Number: None

PATIENT
  Age: 76 Year
  Sex: Female
  Weight: 51.71 kg

DRUGS (2)
  1. LEVOFLOXACIN [Suspect]
     Indication: CYSTITIS
     Route: 048
     Dates: start: 20130715, end: 20130718
  2. LEVOFLOXACIN [Suspect]
     Route: 048
     Dates: start: 20130715, end: 20130718

REACTIONS (14)
  - Poisoning [None]
  - Nightmare [None]
  - Pain [None]
  - Depression [None]
  - Asthenia [None]
  - Nausea [None]
  - Asthenia [None]
  - Diarrhoea haemorrhagic [None]
  - Dizziness [None]
  - Tremor [None]
  - Headache [None]
  - Tendon pain [None]
  - Myalgia [None]
  - Malaise [None]
